FAERS Safety Report 18770387 (Version 1)
Quarter: 2021Q1

REPORT INFORMATION
  Report Type: Spontaneous
  Country: CN (occurrence: CN)
  Receive Date: 20210121
  Receipt Date: 20210121
  Transmission Date: 20210419
  Serious: Yes (Hospitalization)
  Sender: FDA-Public Use
  Company Number: CN-ASTRAZENECA-2021A008264

PATIENT
  Age: 33 Year
  Sex: Female
  Weight: 60 kg

DRUGS (8)
  1. CLARITHROMYCIN. [Suspect]
     Active Substance: CLARITHROMYCIN
     Indication: ILL-DEFINED DISORDER
     Route: 048
     Dates: start: 20201219, end: 20201224
  2. CLARITHROMYCIN. [Suspect]
     Active Substance: CLARITHROMYCIN
     Indication: HELICOBACTER INFECTION
     Route: 048
     Dates: start: 20201219, end: 20201224
  3. AMOXICILLIN. [Suspect]
     Active Substance: AMOXICILLIN
     Indication: HELICOBACTER INFECTION
     Route: 048
     Dates: start: 20201219, end: 20201224
  4. COLLOIDAL BISMUTH PECTIN [Suspect]
     Active Substance: BISMUTH
     Indication: HELICOBACTER INFECTION
     Route: 048
     Dates: start: 20201219, end: 20201224
  5. AMOXICILLIN. [Suspect]
     Active Substance: AMOXICILLIN
     Indication: ILL-DEFINED DISORDER
     Route: 048
     Dates: start: 20201219, end: 20201224
  6. NEXIUM [Suspect]
     Active Substance: ESOMEPRAZOLE MAGNESIUM
     Indication: ILL-DEFINED DISORDER
     Route: 048
     Dates: start: 20201219, end: 20201224
  7. NEXIUM [Suspect]
     Active Substance: ESOMEPRAZOLE MAGNESIUM
     Indication: HELICOBACTER INFECTION
     Route: 048
     Dates: start: 20201219, end: 20201224
  8. COLLOIDAL BISMUTH PECTIN [Suspect]
     Active Substance: BISMUTH
     Indication: ILL-DEFINED DISORDER
     Route: 048
     Dates: start: 20201219, end: 20201224

REACTIONS (1)
  - Drug eruption [Recovering/Resolving]

NARRATIVE: CASE EVENT DATE: 20201224
